FAERS Safety Report 23085183 (Version 1)
Quarter: 2023Q4

REPORT INFORMATION
  Report Type: Spontaneous
  Country: US (occurrence: None)
  Receive Date: 20231019
  Receipt Date: 20231019
  Transmission Date: 20240109
  Serious: Yes (Hospitalization)
  Sender: FDA-Public Use
  Company Number: None

PATIENT
  Age: 19 Year
  Sex: Male
  Weight: 77 kg

DRUGS (1)
  1. SULFAMETHOXAZOLE\TRIMETHOPRIM [Suspect]
     Active Substance: SULFAMETHOXAZOLE\TRIMETHOPRIM
     Indication: Skin bacterial infection
     Dosage: FREQUENCY : TWICE A DAY;?
     Route: 048
     Dates: start: 20230906, end: 20230910

REACTIONS (13)
  - Rash [None]
  - Drug ineffective [None]
  - Rash erythematous [None]
  - Chapped lips [None]
  - Oropharyngeal discolouration [None]
  - Oropharyngeal pain [None]
  - Pyrexia [None]
  - Stevens-Johnson syndrome [None]
  - Oral mucosal blistering [None]
  - Hypophagia [None]
  - Vision blurred [None]
  - Scrotal irritation [None]
  - Genital blister [None]

NARRATIVE: CASE EVENT DATE: 20230913
